FAERS Safety Report 5519680-2 (Version None)
Quarter: 2007Q4

REPORT INFORMATION
  Report Type: 
  Country: None (occurrence: None)
  Receive Date: 20071116
  Receipt Date: 20071109
  Transmission Date: 20080405
  Serious: Yes (Hospitalization)
  Sender: FDA-Public Use
  Company Number: SE-JNJFOC-20071103362

PATIENT
  Sex: Male

DRUGS (1)
  1. IPREN 400MG [Suspect]
     Indication: VIRAL INFECTION
     Route: 048

REACTIONS (4)
  - LETHARGY [None]
  - NAUSEA [None]
  - PRURITUS [None]
  - VOMITING [None]
